FAERS Safety Report 22369791 (Version 1)
Quarter: 2023Q2

REPORT INFORMATION
  Report Type: Spontaneous
  Country: RU (occurrence: RU)
  Receive Date: 20230526
  Receipt Date: 20230526
  Transmission Date: 20230721
  Serious: Yes (Other)
  Sender: FDA-Public Use
  Company Number: RU-ABBVIE-5181133

PATIENT
  Age: 45 Year
  Sex: Male
  Weight: 70 kg

DRUGS (2)
  1. LOPINAVIR\RITONAVIR [Suspect]
     Active Substance: LOPINAVIR\RITONAVIR
     Indication: HIV infection
     Dosage: 1000 MILLIGRAM, FORM STRENGTH: 250 MILLIGRAM
     Route: 048
     Dates: start: 20090809, end: 20191120
  2. LAMIVUDINE [Concomitant]
     Active Substance: LAMIVUDINE
     Indication: HIV infection
     Route: 048
     Dates: end: 20191120

REACTIONS (1)
  - Dyslipidaemia [Recovered/Resolved]

NARRATIVE: CASE EVENT DATE: 20191030
